FAERS Safety Report 5005585-2 (Version None)
Quarter: 2006Q2

REPORT INFORMATION
  Report Type: 
  Country: None (occurrence: None)
  Receive Date: 20060512
  Receipt Date: 20060425
  Transmission Date: 20061013
  Serious: Yes (Hospitalization)
  Sender: FDA-Public Use
  Company Number: AR200604003818

PATIENT
  Age: 64 Year
  Sex: Female
  Weight: 79 kg

DRUGS (2)
  1. F1J-MC-HMEH FIBROMYALGIA SAFETY AND TOLE (DULOXETINE HYDROCHLORIDE) CA [Suspect]
     Indication: FIBROMYALGIA
     Dosage: DAILY (1/D), ORAL
     Route: 048
     Dates: start: 20051213
  2. ACETAMINOPHEN [Concomitant]

REACTIONS (2)
  - DYSPHAGIA [None]
  - RASH [None]
